FAERS Safety Report 9156636 (Version 1)
Quarter: 2013Q1

REPORT INFORMATION
  Report Type: Spontaneous
  Country: IR (occurrence: IR)
  Receive Date: 20130312
  Receipt Date: 20130312
  Transmission Date: 20140127
  Serious: Yes (Death)
  Sender: FDA-Public Use
  Company Number: 2013SP002881

PATIENT
  Age: 26 Year
  Sex: Male

DRUGS (9)
  1. VANCOMYCIN [Suspect]
     Indication: STAPHYLOCOCCAL INFECTION
  2. HYDROCORTISONE [Concomitant]
     Indication: PERITONITIS
  3. HYDROCORTISONE [Concomitant]
     Indication: ILEAL PERFORATION
  4. CIPROFLOXACIN [Concomitant]
     Indication: PERITONITIS
  5. CIPROFLOXACIN [Concomitant]
     Indication: ILEAL PERFORATION
  6. METRONIDAZOLE [Concomitant]
     Indication: PERITONITIS
  7. METRONIDAZOLE [Concomitant]
     Indication: ILEAL PERFORATION
  8. KETOCONAZOLE [Concomitant]
     Indication: PERITONITIS
  9. KETOCONAZOLE [Concomitant]
     Indication: ILEAL PERFORATION

REACTIONS (3)
  - Respiratory distress [Fatal]
  - Staphylococcal infection [Fatal]
  - Acinetobacter infection [Fatal]
